FAERS Safety Report 7079302-9 (Version None)
Quarter: 2010Q4

REPORT INFORMATION
  Report Type: 
  Country: None (occurrence: None)
  Receive Date: 20101102
  Receipt Date: 20101026
  Transmission Date: 20110411
  Serious: Yes (Other)
  Sender: FDA-Public Use
  Company Number: ES-JNJFOC-20101005742

PATIENT
  Age: 55 Year
  Sex: Female
  Weight: 104 kg

DRUGS (3)
  1. REMICADE [Suspect]
     Indication: INFLAMMATORY BOWEL DISEASE
     Route: 042
  2. ADALIMUMAB [Suspect]
     Indication: INFLAMMATORY BOWEL DISEASE
     Dosage: DOSAGE 80/40/40
     Route: 058
  3. AZATHIOPRINE [Concomitant]
     Route: 048

REACTIONS (2)
  - DRUG INEFFECTIVE [None]
  - ENDOMETRIAL CANCER [None]
